FAERS Safety Report 17739634 (Version 1)
Quarter: 2020Q2

REPORT INFORMATION
  Report Type: Spontaneous
  Country: US (occurrence: US)
  Receive Date: 20200501
  Receipt Date: 20200501
  Transmission Date: 20200714
  Serious: Yes (Hospitalization)
  Sender: FDA-Public Use
  Company Number: None

PATIENT
  Age: 69 Year
  Sex: Female

DRUGS (1)
  1. REPATHA [Suspect]
     Active Substance: EVOLOCUMAB
     Indication: CYSTIC FIBROSIS
     Dosage: ?          OTHER DOSE:1 PEN; Q2W?
     Route: 058
     Dates: start: 20200121

REACTIONS (3)
  - Seizure [None]
  - Therapy interrupted [None]
  - Gastrointestinal infection [None]

NARRATIVE: CASE EVENT DATE: 20200411
